FAERS Safety Report 4650908-7 (Version None)
Quarter: 2005Q2

REPORT INFORMATION
  Report Type: 
  Country: None (occurrence: None)
  Receive Date: 20050429
  Receipt Date: 20050427
  Transmission Date: 20051028
  Serious: Yes (Hospitalization, Other)
  Sender: FDA-Public Use
  Company Number: ITWYE622527APR05

PATIENT
  Age: 74 Year
  Sex: Male

DRUGS (2)
  1. EFFEXOR [Suspect]
     Indication: MAJOR DEPRESSION
     Dosage: 150 MG 1X PER 1 DAY
     Route: 048
     Dates: start: 20050215, end: 20050415
  2. REMERON [Concomitant]

REACTIONS (1)
  - PANCREATIC ENZYMES INCREASED [None]
